FAERS Safety Report 23195830 (Version 2)
Quarter: 2024Q1

REPORT INFORMATION
  Report Type: Other
  Country: IT (occurrence: IT)
  Receive Date: 20231117
  Receipt Date: 20240105
  Transmission Date: 20240409
  Serious: Yes (Hospitalization)
  Sender: FDA-Public Use
  Company Number: None

PATIENT
  Age: 32 Year
  Sex: Female

DRUGS (3)
  1. MEROPENEM [Suspect]
     Active Substance: MEROPENEM
     Indication: Infection
     Dosage: 2 GRAM, TID; 2G X3/DIE EV
     Route: 042
     Dates: start: 20231014, end: 20231018
  2. VANCOMYCIN HYDROCHLORIDE [Suspect]
     Active Substance: VANCOMYCIN HYDROCHLORIDE
     Indication: Product used for unknown indication
     Dosage: 600 MILLIGRAM, BID (600 MG OGNI 12 ORE EV)
     Route: 042
     Dates: start: 20231014, end: 20231016
  3. LINEZOLID [Suspect]
     Active Substance: LINEZOLID
     Indication: Infection
     Dosage: 600 MILLIGRAM, BID (600 MG OGNI 12 ORE EV)
     Route: 042
     Dates: start: 20231016, end: 20231018

REACTIONS (5)
  - Influenza [Recovered/Resolved]
  - Erythema [Recovered/Resolved]
  - Gastrointestinal disorder [Recovered/Resolved]
  - Skin reaction [Recovered/Resolved]
  - Neck pain [Recovered/Resolved]

NARRATIVE: CASE EVENT DATE: 20231018
